FAERS Safety Report 6986530-7 (Version None)
Quarter: 2010Q3

REPORT INFORMATION
  Report Type: 
  Country: None (occurrence: None)
  Receive Date: 20100827
  Receipt Date: 20090909
  Transmission Date: 20110219
  Serious: Yes (Other)
  Sender: FDA-Public Use
  Company Number: AMAG200900013

PATIENT
  Age: 22 Year
  Sex: Male
  Weight: 44.9 kg

DRUGS (3)
  1. FERAHEME [Suspect]
     Indication: IRON DEFICIENCY ANAEMIA
     Dosage: 60 MG, SINGLE, INTRAVENOUS
     Route: 042
     Dates: start: 20090909, end: 20090909
  2. NIFEREX (POLYSACCHARIDE-IRON COMPLEX) [Concomitant]
  3. METOPROLOL TARTRATE [Concomitant]

REACTIONS (4)
  - CHEST PAIN [None]
  - DYSPNOEA [None]
  - FLUSHING [None]
  - RESTLESSNESS [None]
